FAERS Safety Report 14508519 (Version 1)
Quarter: 2018Q1

REPORT INFORMATION
  Report Type: Spontaneous
  Country: US (occurrence: US)
  Receive Date: 20180209
  Receipt Date: 20180209
  Transmission Date: 20180509
  Serious: Yes (Death, Hospitalization, Other)
  Sender: FDA-Public Use
  Company Number: US-ENDO PHARMACEUTICALS INC-2018-016496

PATIENT
  Age: 74 Year
  Sex: Female

DRUGS (22)
  1. PREDNISONE TABLETS [Suspect]
     Active Substance: PREDNISONE
     Dosage: 3 MG, UNK
     Route: 065
  2. PREDNISONE TABLETS [Suspect]
     Active Substance: PREDNISONE
     Dosage: 8 MG, UNK
     Route: 065
  3. PREDNISONE TABLETS [Suspect]
     Active Substance: PREDNISONE
     Dosage: 3 MG, UNK
     Route: 065
  4. PREDNISONE TABLETS [Suspect]
     Active Substance: PREDNISONE
     Dosage: 1 MG, UNK
     Route: 065
  5. PREDNISONE TABLETS [Suspect]
     Active Substance: PREDNISONE
     Dosage: 1 MG, UNK
     Route: 065
  6. PREDNISONE TABLETS [Suspect]
     Active Substance: PREDNISONE
     Dosage: 10 MG, UNK
     Route: 065
  7. PREDNISONE TABLETS [Suspect]
     Active Substance: PREDNISONE
     Dosage: 5 MG, UNK
     Route: 065
  8. PREDNISONE TABLETS [Suspect]
     Active Substance: PREDNISONE
     Dosage: 40 MG, UNK
     Route: 065
  9. PREDNISONE TABLETS [Suspect]
     Active Substance: PREDNISONE
     Indication: TEMPORAL ARTERITIS
     Dosage: 80 MG, DAILY
     Route: 065
  10. PREDNISONE TABLETS [Suspect]
     Active Substance: PREDNISONE
     Dosage: 25 MG, UNK
     Route: 065
  11. PREDNISONE TABLETS [Suspect]
     Active Substance: PREDNISONE
     Dosage: 30 MG, UNK
     Route: 065
  12. PREDNISONE TABLETS [Suspect]
     Active Substance: PREDNISONE
     Dosage: 7 MG, UNK
     Route: 065
  13. PREDNISONE TABLETS [Suspect]
     Active Substance: PREDNISONE
     Dosage: 30 MG, UNK
     Route: 065
  14. PREDNISONE TABLETS [Suspect]
     Active Substance: PREDNISONE
     Dosage: 15 MG, UNK
     Route: 065
  15. PREDNISONE TABLETS [Suspect]
     Active Substance: PREDNISONE
     Dosage: 60 MG, UNK
     Route: 065
  16. PREDNISONE TABLETS [Suspect]
     Active Substance: PREDNISONE
     Dosage: 20 MG, UNK
     Route: 065
  17. PREDNISONE TABLETS [Suspect]
     Active Substance: PREDNISONE
     Dosage: 10 MG, UNK
     Route: 065
  18. PREDNISONE TABLETS [Suspect]
     Active Substance: PREDNISONE
     Dosage: 5 MG, UNK
     Route: 065
  19. PREDNISONE TABLETS [Suspect]
     Active Substance: PREDNISONE
     Dosage: 1 MG, UNK
     Route: 065
  20. PREDNISONE TABLETS [Suspect]
     Active Substance: PREDNISONE
     Indication: HORNER^S SYNDROME
     Dosage: 55 MG, UNK
     Route: 065
  21. PREDNISONE TABLETS [Suspect]
     Active Substance: PREDNISONE
     Dosage: 20 MG, UNK
     Route: 065
  22. PREDNISONE TABLETS [Suspect]
     Active Substance: PREDNISONE
     Dosage: 15 MG, UNK
     Route: 065

REACTIONS (18)
  - Condition aggravated [Unknown]
  - Urinary tract infection [Unknown]
  - Pneumothorax [Unknown]
  - Oedema peripheral [Unknown]
  - Colon cancer [Fatal]
  - Septic shock [Unknown]
  - Lung adenocarcinoma [Unknown]
  - Cardiac disorder [Unknown]
  - Temporal arteritis [Unknown]
  - Abnormal behaviour [Unknown]
  - Spinal cord neoplasm [Fatal]
  - Enteritis infectious [Unknown]
  - Lymphopenia [Unknown]
  - Face oedema [Unknown]
  - Pneumonia [Unknown]
  - Suicidal ideation [Unknown]
  - Oedema [Unknown]
  - Osteoporosis [Unknown]
